FAERS Safety Report 8093774-2 (Version None)
Quarter: 2012Q1

REPORT INFORMATION
  Report Type: 
  Country: None (occurrence: None)
  Receive Date: 20120131
  Receipt Date: 20120126
  Transmission Date: 20120608
  Serious: Yes (Death)
  Sender: FDA-Public Use
  Company Number: JP-SANOFI-AVENTIS-2012SA005751

PATIENT
  Age: 50 Year
  Sex: Male

DRUGS (1)
  1. OXALIPLATIN [Suspect]
     Route: 065

REACTIONS (1)
  - HEPATIC FAILURE [None]
